FAERS Safety Report 7492049-X (Version None)
Quarter: 2011Q2

REPORT INFORMATION
  Report Type: 
  Country: None (occurrence: None)
  Receive Date: 20110519
  Receipt Date: 20110516
  Transmission Date: 20111010
  Serious: Yes (Other)
  Sender: FDA-Public Use
  Company Number: US-ABBOTT-11P-163-0724585-00

PATIENT
  Age: 69 Year
  Sex: Female

DRUGS (2)
  1. PROPOFOL [Suspect]
     Indication: GENERAL ANAESTHESIA
  2. SEVOFLURANE [Suspect]
     Indication: GENERAL ANAESTHESIA

REACTIONS (1)
  - ACUTE HAEMORRHAGIC LEUKOENCEPHALITIS [None]
